FAERS Safety Report 5843834-9 (Version None)
Quarter: 2008Q3

REPORT INFORMATION
  Report Type: 
  Country: None (occurrence: None)
  Receive Date: 20080813
  Receipt Date: 20080805
  Transmission Date: 20090109
  Serious: Yes (Other)
  Sender: FDA-Public Use
  Company Number: PHHY2008FR16969

PATIENT
  Sex: Female

DRUGS (6)
  1. ACLASTA [Suspect]
     Dosage: 5 MG
     Route: 042
  2. ANGIOTENSIN CONVERTING ENZYME BLOCKERS [Concomitant]
  3. ALDACTONE [Concomitant]
  4. VASTAREL [Concomitant]
  5. VEINOTONIC DRUG [Concomitant]
  6. PLAVIX [Concomitant]

REACTIONS (3)
  - ATRIAL FIBRILLATION [None]
  - MALAISE [None]
  - TACHYARRHYTHMIA [None]
